FAERS Safety Report 24151966 (Version 2)
Quarter: 2024Q3

REPORT INFORMATION
  Report Type: Spontaneous
  Country: US (occurrence: US)
  Receive Date: 20240730
  Receipt Date: 20240829
  Transmission Date: 20241017
  Serious: Yes (Hospitalization)
  Sender: SAREPTA THERAPEUTICS
  Company Number: US-SAREPTA THERAPEUTICS INC.-SRP2024-004734

PATIENT
  Age: 15 Year
  Sex: Male
  Weight: 97.7 kg

DRUGS (2)
  1. AMONDYS 45 [Suspect]
     Active Substance: CASIMERSEN
     Indication: Duchenne muscular dystrophy
     Dosage: 2950 MILLIGRAM, WEEKLY
     Route: 042
     Dates: end: 20240523
  2. AMONDYS 45 [Suspect]
     Active Substance: CASIMERSEN
     Dosage: 3000 MILLIGRAM
     Route: 042
     Dates: start: 20240612

REACTIONS (2)
  - Poor venous access [Recovered/Resolved]
  - Vein rupture [Unknown]

NARRATIVE: CASE EVENT DATE: 20240601
